FAERS Safety Report 6160314-4 (Version None)
Quarter: 2009Q2

REPORT INFORMATION
  Report Type: 
  Country: None (occurrence: None)
  Receive Date: 20090420
  Receipt Date: 20090408
  Transmission Date: 20091009
  Serious: Yes (Death, Other)
  Sender: FDA-Public Use
  Company Number: US-BAXTER-2009BH005460

PATIENT
  Sex: Female

DRUGS (2)
  1. HEPARIN SODIUM INJECTION [Suspect]
     Indication: PROPHYLAXIS
     Route: 065
     Dates: start: 20070412
  2. HEPARIN SODIUM INJECTION [Suspect]
     Route: 065

REACTIONS (2)
  - ADVERSE EVENT [None]
  - DEATH [None]
